FAERS Safety Report 5800600-8 (Version None)
Quarter: 2008Q3

REPORT INFORMATION
  Report Type: 
  Country: None (occurrence: None)
  Receive Date: 20080701
  Receipt Date: 20080625
  Transmission Date: 20090109
  Serious: Yes (Death, Hospitalization, Other)
  Sender: FDA-Public Use
  Company Number: 062-21880-07081774

PATIENT
  Age: 47 Year
  Sex: Male
  Weight: 128 kg

DRUGS (6)
  1. REVLIMID [Suspect]
     Indication: CHRONIC LYMPHOCYTIC LEUKAEMIA
     Dosage: 25 MG, X2, ORAL
     Route: 048
     Dates: start: 20070821, end: 20070822
  2. ENOXAPARIN SODIUM [Concomitant]
  3. PREDNISOLONE [Concomitant]
  4. RAMIPRIL [Concomitant]
  5. FUROSEMIDE [Concomitant]
  6. ALLOPURINOL [Concomitant]

REACTIONS (15)
  - BACK PAIN [None]
  - BLOOD CULTURE POSITIVE [None]
  - BLOOD LACTATE DEHYDROGENASE INCREASED [None]
  - BLOOD URIC ACID INCREASED [None]
  - DYSPNOEA [None]
  - ELECTROMECHANICAL DISSOCIATION [None]
  - HYPERKALAEMIA [None]
  - PLATELET COUNT DECREASED [None]
  - PYREXIA [None]
  - RENAL FAILURE [None]
  - SEPSIS [None]
  - STAPHYLOCOCCAL INFECTION [None]
  - TUMOUR LYSIS SYNDROME [None]
  - UNEVALUABLE EVENT [None]
  - WHITE BLOOD CELL COUNT INCREASED [None]
